FAERS Safety Report 6825159-8 (Version None)
Quarter: 2010Q3

REPORT INFORMATION
  Report Type: 
  Country: None (occurrence: None)
  Receive Date: 20100708
  Receipt Date: 20070319
  Transmission Date: 20110219
  Serious: No
  Sender: FDA-Public Use
  Company Number: US-PFIZER INC-2007001992

PATIENT
  Sex: Female
  Weight: 65.77 kg

DRUGS (6)
  1. CHANTIX [Suspect]
     Indication: SMOKING CESSATION THERAPY
     Dates: start: 20061227
  2. XANAX [Concomitant]
  3. ELAVIL [Concomitant]
     Indication: INSOMNIA
  4. DESYREL [Concomitant]
     Indication: INSOMNIA
  5. MONTELUKAST SODIUM [Concomitant]
  6. NORVASC [Concomitant]
     Indication: HYPERTENSION

REACTIONS (8)
  - COUGH [None]
  - HYPOAESTHESIA [None]
  - INSOMNIA [None]
  - LARYNGITIS [None]
  - NAUSEA [None]
  - PARAESTHESIA [None]
  - SCRATCH [None]
  - WHEEZING [None]
